FAERS Safety Report 5933745-2 (Version None)
Quarter: 2008Q4

REPORT INFORMATION
  Report Type: 
  Country: None (occurrence: None)
  Receive Date: 20081029
  Receipt Date: 20081017
  Transmission Date: 20090506
  Serious: Yes (Hospitalization)
  Sender: FDA-Public Use
  Company Number: US-ROCHE-588723

PATIENT
  Sex: Male
  Weight: 55.8 kg

DRUGS (2)
  1. CAPECITABINE [Suspect]
     Indication: COLORECTAL CANCER
     Route: 065
  2. CAPECITABINE [Suspect]
     Route: 065
     Dates: start: 20080921

REACTIONS (3)
  - HIATUS HERNIA [None]
  - INFECTION [None]
  - OESOPHAGEAL OBSTRUCTION [None]
